FAERS Safety Report 7574801-5 (Version None)
Quarter: 2011Q2

REPORT INFORMATION
  Report Type: 
  Country: None (occurrence: None)
  Receive Date: 20110627
  Receipt Date: 20110426
  Transmission Date: 20111010
  Serious: Yes (Hospitalization, Other)
  Sender: FDA-Public Use
  Company Number: US-BAYER-201040115NA

PATIENT
  Age: 43 Year
  Sex: Female
  Weight: 87 kg

DRUGS (12)
  1. CYTOMEL [Concomitant]
  2. CLOMIPHENE CITRATE [Concomitant]
  3. MATERNA [FOLIC ACID,IRON,MINERALS NOS,VITAMINS NOS] [Concomitant]
  4. VYTORIN [Concomitant]
  5. ZYRTEC [Concomitant]
  6. LISINOPRIL [Concomitant]
  7. METROLYL [Concomitant]
  8. LEVOTHYROXINE SODIUM [Concomitant]
  9. SIMVASTIN-MEPHA [Concomitant]
  10. SYNTHROID [Concomitant]
  11. ZOVAZ [Concomitant]
  12. YAZ [Suspect]
     Indication: ORAL CONTRACEPTION
     Dosage: UNK
     Dates: start: 20070629, end: 20081024

REACTIONS (4)
  - ARTERIAL THROMBOSIS [None]
  - CHEST PAIN [None]
  - MYOCARDIAL INFARCTION [None]
  - DYSPNOEA [None]
